FAERS Safety Report 19391051 (Version 1)
Quarter: 2021Q2

REPORT INFORMATION
  Report Type: Spontaneous
  Country: SA (occurrence: SA)
  Receive Date: 20210608
  Receipt Date: 20210608
  Transmission Date: 20210717
  Serious: Yes (Hospitalization)
  Sender: FDA-Public Use
  Company Number: SA-SLATE RUN PHARMACEUTICALS-21SA000513

PATIENT

DRUGS (2)
  1. AMBISOME [Concomitant]
     Active Substance: AMPHOTERICIN B
     Indication: PSEUDALLESCHERIA INFECTION
     Dosage: 5 MILLIGRAM PER KILOGRAM, QD
     Route: 042
  2. VORICONAZOLE. [Suspect]
     Active Substance: VORICONAZOLE
     Indication: PSEUDALLESCHERIA INFECTION
     Dosage: 8 MILLIGRAM PER KILOGRAM, BID

REACTIONS (2)
  - Rhabdomyolysis [Recovered/Resolved]
  - Hypokalaemia [Recovered/Resolved]
